FAERS Safety Report 17430963 (Version 4)
Quarter: 2020Q1

REPORT INFORMATION
  Report Type: Report from Study
  Country: US (occurrence: US)
  Receive Date: 20200218
  Receipt Date: 20200319
  Transmission Date: 20200409
  Serious: Yes (Hospitalization, Other)
  Sender: FDA-Public Use
  Company Number: US-PFIZER INC-2020045993

PATIENT
  Age: 60 Year
  Sex: Male

DRUGS (3)
  1. SUTENT [Suspect]
     Active Substance: SUNITINIB MALATE
     Dosage: 37.5 MG, DAILY
     Route: 048
     Dates: start: 20200124
  2. SUTENT [Suspect]
     Active Substance: SUNITINIB MALATE
     Indication: GASTROINTESTINAL STROMAL TUMOUR
     Dosage: 37.5 MG, DAILY
     Route: 048
     Dates: start: 20200127, end: 20200203
  3. SUTENT [Suspect]
     Active Substance: SUNITINIB MALATE
     Dosage: 37.5 MG, DAILY
     Route: 048
     Dates: start: 20200213

REACTIONS (17)
  - Dehydration [Recovered/Resolved]
  - Blood creatinine increased [Recovering/Resolving]
  - Urinary tract infection [Recovered/Resolved]
  - Pelvic pain [Unknown]
  - Vomiting [Recovered/Resolved]
  - Dizziness [Unknown]
  - Lethargy [Unknown]
  - Blood potassium increased [Unknown]
  - Diarrhoea [Recovering/Resolving]
  - Nausea [Recovered/Resolved]
  - Blood pressure increased [Unknown]
  - Product prescribing error [Unknown]
  - Product physical issue [Unknown]
  - Faeces discoloured [Unknown]
  - Chromaturia [Unknown]
  - Diarrhoea haemorrhagic [Unknown]
  - Wrong technique in product usage process [Unknown]

NARRATIVE: CASE EVENT DATE: 202001
